FAERS Safety Report 24020066 (Version 1)
Quarter: 2024Q2

REPORT INFORMATION
  Report Type: Report from Study
  Country: PH (occurrence: PH)
  Receive Date: 20240627
  Receipt Date: 20240627
  Transmission Date: 20240717
  Serious: Yes (Death)
  Sender: FDA-Public Use
  Company Number: PH-OTSUKA-2024_017971

PATIENT
  Sex: Female

DRUGS (1)
  1. TOLVAPTAN [Suspect]
     Active Substance: TOLVAPTAN
     Indication: Product used for unknown indication
     Dosage: 0.5 DF, TIW (SAMSCA 15 MG HALF TABLET EVERY TUESDAY, THURSDAY, AND SATURDAY)
     Route: 048
     Dates: start: 202310

REACTIONS (1)
  - Death [Fatal]
